FAERS Safety Report 21599973 (Version 3)
Quarter: 2023Q1

REPORT INFORMATION
  Report Type: Spontaneous
  Country: AT (occurrence: AT)
  Receive Date: 20221116
  Receipt Date: 20230126
  Transmission Date: 20230417
  Serious: No
  Sender: FDA-Public Use
  Company Number: AT-PAREXEL-2019AT000226

PATIENT

DRUGS (2)
  1. ELIGARD [Suspect]
     Active Substance: LEUPROLIDE ACETATE
     Indication: Product used for unknown indication
     Dosage: UNK,UNK
     Route: 058
  2. POLYLACTIDE [Suspect]
     Active Substance: POLYLACTIDE
     Indication: Product used for unknown indication
     Dosage: UNK,UNK

REACTIONS (2)
  - Injection site granuloma [Unknown]
  - Injection site abscess [Unknown]
